FAERS Safety Report 21756805 (Version 1)
Quarter: 2022Q4

REPORT INFORMATION
  Report Type: Spontaneous
  Country: CN (occurrence: None)
  Receive Date: 20221220
  Receipt Date: 20221220
  Transmission Date: 20230113
  Serious: Yes (Hospitalization, Other)
  Sender: FDA-Public Use
  Company Number: 2022A403831

PATIENT
  Age: 16038 Day
  Sex: Male
  Weight: 56 kg

DRUGS (1)
  1. TAGRISSO [Suspect]
     Active Substance: OSIMERTINIB
     Indication: Neoplasm malignant
     Route: 048
     Dates: start: 20210915, end: 20211127

REACTIONS (1)
  - Hepatic failure [Recovering/Resolving]

NARRATIVE: CASE EVENT DATE: 20221127
